FAERS Safety Report 6744622-1 (Version None)
Quarter: 2010Q2

REPORT INFORMATION
  Report Type: 
  Country: None (occurrence: None)
  Receive Date: 20100526
  Receipt Date: 20100526
  Transmission Date: 20101027
  Serious: Yes (Disabling, Other)
  Sender: FDA-Public Use
  Company Number: None

PATIENT
  Age: 32 Year
  Sex: Female
  Weight: 89.8122 kg

DRUGS (1)
  1. OCELLA 28 3-0.03MG BARR LABORATORIES [Suspect]
     Indication: CONTRACEPTION
     Dosage: 1 PER DAY DAILY PO
     Route: 048
     Dates: start: 20090701, end: 20100322

REACTIONS (11)
  - ALOPECIA [None]
  - BACK PAIN [None]
  - DRUG INEFFECTIVE [None]
  - DYSMENORRHOEA [None]
  - HEADACHE [None]
  - HORMONE LEVEL ABNORMAL [None]
  - MENORRHAGIA [None]
  - MOOD SWINGS [None]
  - MUSCLE SPASMS [None]
  - PARTNER STRESS [None]
  - PERSONALITY CHANGE [None]
